FAERS Safety Report 22005398 (Version 2)
Quarter: 2023Q1

REPORT INFORMATION
  Report Type: Other
  Country: CY (occurrence: GR)
  Receive Date: 20230217
  Receipt Date: 20230308
  Transmission Date: 20230418
  Serious: Yes (Hospitalization)
  Sender: FDA-Public Use
  Company Number: CY-BoehringerIngelheim-2023-BI-218567

PATIENT
  Age: 62 Year
  Sex: Female

DRUGS (1)
  1. ALTEPLASE [Suspect]
     Active Substance: ALTEPLASE
     Indication: Ischaemic stroke
     Route: 042

REACTIONS (2)
  - Stress cardiomyopathy [Unknown]
  - Chest pain [Unknown]
